FAERS Safety Report 12622274 (Version 5)
Quarter: 2017Q1

REPORT INFORMATION
  Report Type: Report from Study
  Country: JP (occurrence: JP)
  Receive Date: 20160804
  Receipt Date: 20170303
  Transmission Date: 20170428
  Serious: Yes (Hospitalization)
  Sender: FDA-Public Use
  Company Number: JP-ASTRAZENECA-2016SE82962

PATIENT
  Age: 66 Year
  Sex: Male
  Weight: 51 kg

DRUGS (22)
  1. TAGRISSO [Suspect]
     Active Substance: OSIMERTINIB
     Indication: NON-SMALL CELL LUNG CANCER
     Route: 048
     Dates: start: 20160808, end: 20160815
  2. FEXOFENADINE HYDROCHLORIDE. [Concomitant]
     Active Substance: FEXOFENADINE HYDROCHLORIDE
     Dosage: 60 MG, TWO TIMES A DAY, AFTER BREAKFAST AND EVENING MEAL
     Route: 048
     Dates: start: 20140411
  3. LOCOID [Concomitant]
     Active Substance: HYDROCORTISONE BUTYRATE
     Indication: RASH
     Dosage: 2 DF, OPTIMAL DOSE, TWICE DAILY
     Route: 062
  4. URSODEOXYCHOLIC ACID [Concomitant]
     Active Substance: URSODIOL
     Dosage: 100 MG, THREE TIMES A DAY, AFTER EVERY MEAL
     Route: 048
     Dates: start: 20150402
  5. WHITE PETROLATUM [Concomitant]
     Active Substance: PETROLATUM
     Route: 065
  6. HIRUDOID [Concomitant]
     Active Substance: GLYCOSAMINOGLYCANS
     Route: 062
  7. CALCICOL [Concomitant]
     Active Substance: CALCIUM GLUCONATE
     Route: 065
     Dates: start: 20160727, end: 20160801
  8. OXYCONTIN [Concomitant]
     Active Substance: OXYCODONE HYDROCHLORIDE
     Dosage: 5 MG AT 8:00 IN THE MORNING AND AT 20:00 IN THE EVENING
     Route: 048
     Dates: start: 20160606
  9. CALCIUM LACTATE [Concomitant]
     Active Substance: CALCIUM LACTATE
     Dosage: 1.5 G, THREE TIMES A DAY ,AFTER EVERY MEAL, DOSE ADJUSTED AS REQUIRED
     Route: 065
     Dates: start: 20131227
  10. MINOCYCLINE HYDROCHLORIDE. [Concomitant]
     Active Substance: MINOCYCLINE HYDROCHLORIDE
     Route: 048
     Dates: start: 20140515, end: 20150101
  11. FAMOTIDINE D [Concomitant]
     Active Substance: FAMOTIDINE
     Dosage: 20 MG, AFTER BREAKFAST
     Route: 048
     Dates: start: 20150417
  12. RANMARK [Suspect]
     Active Substance: DENOSUMAB
     Indication: METASTASIS
     Route: 065
     Dates: start: 20151105, end: 20160607
  13. ONEALFA [Concomitant]
     Active Substance: ALFACALCIDOL
     Route: 048
     Dates: start: 20160906
  14. RINDERON VG [Concomitant]
     Active Substance: BETAMETHASONE VALERATE\GENTAMICIN SULFATE
     Indication: RASH
     Dosage: 6 DF, OPTIMAL DOSE, TWICE DAILY
     Route: 062
  15. TAGRISSO [Suspect]
     Active Substance: OSIMERTINIB
     Indication: NON-SMALL CELL LUNG CANCER
     Route: 048
     Dates: start: 20160624, end: 20160807
  16. ONEALFA [Concomitant]
     Active Substance: ALFACALCIDOL
     Route: 048
     Dates: start: 20160802, end: 20160808
  17. MINOCYCLINE HYDROCHLORIDE. [Concomitant]
     Active Substance: MINOCYCLINE HYDROCHLORIDE
     Dosage: 50 MG, AFTER BREAKFAST AND EVENING MEAL
     Route: 048
     Dates: start: 20160107
  18. TAGRISSO [Suspect]
     Active Substance: OSIMERTINIB
     Indication: NON-SMALL CELL LUNG CANCER
     Route: 048
     Dates: start: 20160816
  19. ONEALFA [Concomitant]
     Active Substance: ALFACALCIDOL
     Dosage: 1 UG AFTER BREAKFAST
     Route: 048
     Dates: start: 20150213, end: 20160802
  20. ONEALFA [Concomitant]
     Active Substance: ALFACALCIDOL
     Route: 048
     Dates: start: 20160808, end: 20160906
  21. CALONAL [Concomitant]
     Active Substance: ACETAMINOPHEN
     Dosage: 50 MG, FOUR TIMES A DAY, AFTER EVERY MEAL AND BEFORE BEDTIME
     Route: 048
     Dates: start: 20160531
  22. MAGNESIUM OXIDE. [Concomitant]
     Active Substance: MAGNESIUM OXIDE
     Dosage: 330.0MG AS REQUIRED
     Route: 048

REACTIONS (2)
  - Hypocalcaemia [Recovered/Resolved]
  - Electrocardiogram QT prolonged [Recovered/Resolved]

NARRATIVE: CASE EVENT DATE: 20160712
